FAERS Safety Report 18417637 (Version 1)
Quarter: 2020Q4

REPORT INFORMATION
  Report Type: Spontaneous
  Country: US (occurrence: US)
  Receive Date: 20201022
  Receipt Date: 20201022
  Transmission Date: 20210114
  Serious: No
  Sender: FDA-Public Use
  Company Number: US-SEATTLE GENETICS-2020SGN04139

PATIENT
  Sex: Female

DRUGS (1)
  1. TUKYSA [Suspect]
     Active Substance: TUCATINIB
     Indication: BREAST CANCER FEMALE
     Dosage: UNK
     Route: 065

REACTIONS (13)
  - Sensitive skin [Unknown]
  - Liver function test increased [Unknown]
  - Abdominal discomfort [Unknown]
  - Lymphadenopathy [Unknown]
  - Diarrhoea [Unknown]
  - Lip dry [Unknown]
  - Neck mass [Unknown]
  - White blood cell count decreased [Unknown]
  - Palmar-plantar erythrodysaesthesia syndrome [Unknown]
  - Erythema [Unknown]
  - Rash pruritic [Unknown]
  - Oral pain [Unknown]
  - Blood bilirubin increased [Unknown]
